FAERS Safety Report 6273291-2 (Version None)
Quarter: 2009Q3

REPORT INFORMATION
  Report Type: 
  Country: None (occurrence: None)
  Receive Date: 20090720
  Receipt Date: 20090708
  Transmission Date: 20100115
  Serious: Yes (Other)
  Sender: FDA-Public Use
  Company Number: US-ROCHE-636130

PATIENT
  Sex: Female
  Weight: 58.6 kg

DRUGS (5)
  1. CAPECITABINE [Suspect]
     Indication: GLIOMA
     Route: 048
     Dates: start: 20090428, end: 20090609
  2. ZOFRAN [Concomitant]
     Dosage: TDD: 8MG 1-2X/DAY
     Dates: start: 20090428
  3. ZANTAC [Concomitant]
     Dates: start: 20090505
  4. DECADRON [Concomitant]
     Dates: start: 20090505
  5. OXYCODONE [Concomitant]
     Dosage: TDD: 5MG Q4-6HR
     Dates: start: 20090505

REACTIONS (2)
  - BLOOD CREATININE INCREASED [None]
  - SKIN REACTION [None]
